FAERS Safety Report 13024197 (Version 1)
Quarter: 2016Q4

REPORT INFORMATION
  Report Type: Spontaneous
  Country: IN (occurrence: IN)
  Receive Date: 20161213
  Receipt Date: 20161213
  Transmission Date: 20170207
  Serious: Yes (Death)
  Sender: FDA-Public Use
  Company Number: IN-NORTH CREEK PHARMACEUTICALS LLC-2016VTS00344

PATIENT

DRUGS (1)
  1. DAPSONE. [Suspect]
     Active Substance: DAPSONE
     Route: 065

REACTIONS (4)
  - Multiple organ dysfunction syndrome [Fatal]
  - Stevens-Johnson syndrome [Fatal]
  - Toxic epidermal necrolysis [Fatal]
  - Drug-induced liver injury [None]
